FAERS Safety Report 6516927-0 (Version None)
Quarter: 2009Q4

REPORT INFORMATION
  Report Type: 
  Country: None (occurrence: None)
  Receive Date: 20091223
  Receipt Date: 20091217
  Transmission Date: 20100525
  Serious: Yes (Hospitalization, Other)
  Sender: FDA-Public Use
  Company Number: US-JNJFOC-20091205621

PATIENT
  Age: 86 Year
  Sex: Female

DRUGS (1)
  1. NUCYNTA [Suspect]
     Indication: BACK PAIN
     Dosage: 15 X 50MG TABLETS
     Route: 048

REACTIONS (3)
  - LOSS OF CONSCIOUSNESS [None]
  - OVERDOSE [None]
  - SUICIDE ATTEMPT [None]
